FAERS Safety Report 7867424-1 (Version None)
Quarter: 2011Q4

REPORT INFORMATION
  Report Type: 
  Country: None (occurrence: None)
  Receive Date: 20111028
  Receipt Date: 20111019
  Transmission Date: 20120403
  Serious: Yes (Hospitalization)
  Sender: FDA-Public Use
  Company Number: RO-MERCK-1110USA02573

PATIENT
  Age: 5 Year
  Sex: Male
  Weight: 22 kg

DRUGS (8)
  1. INVANZ [Suspect]
     Indication: PNEUMONIA
     Dosage: DIVIDED IN 2 ADMINISTRATIONS AT 12 HOURS
     Route: 042
     Dates: start: 20111012, end: 20111018
  2. FLUTICASONE PROPIONATE [Concomitant]
     Indication: OBSTRUCTION
     Route: 055
     Dates: start: 20111013, end: 20111020
  3. IBALGIN [Concomitant]
     Indication: ANTIINFLAMMATORY THERAPY
     Route: 048
     Dates: start: 20111012, end: 20111019
  4. AMBROXOL [Concomitant]
     Indication: PRODUCTIVE COUGH
     Route: 048
     Dates: start: 20111013, end: 20111020
  5. INVANZ [Suspect]
     Indication: ACUTE RESPIRATORY FAILURE
     Dosage: DIVIDED IN 2 ADMINISTRATIONS AT 12 HOURS
     Route: 042
     Dates: start: 20111012, end: 20111018
  6. CIPRINOL [Concomitant]
     Indication: PNEUMONIA
     Route: 042
     Dates: start: 20111012, end: 20111021
  7. VENTOLIN [Concomitant]
     Indication: OBSTRUCTION
     Route: 055
     Dates: start: 20111013, end: 20111019
  8. SODIUM CHLORIDE [Concomitant]
     Indication: RHINORRHOEA
     Route: 055
     Dates: start: 20111014, end: 20111019

REACTIONS (4)
  - CONFUSIONAL STATE [None]
  - HYPOACUSIS [None]
  - MUSCLE SPASMS [None]
  - ATTENTION DEFICIT/HYPERACTIVITY DISORDER [None]
